FAERS Safety Report 6818774-9 (Version None)
Quarter: 2010Q2

REPORT INFORMATION
  Report Type: 
  Country: None (occurrence: None)
  Receive Date: 20100630
  Receipt Date: 20100617
  Transmission Date: 20101027
  Serious: Yes (Hospitalization)
  Sender: FDA-Public Use
  Company Number: 2009SP006413

PATIENT
  Age: 45 Year
  Weight: 87.0906 kg

DRUGS (11)
  1. PEG-INTRON [Suspect]
     Indication: HEPATITIS C
     Dosage: 150 MCG; QW;IM
     Route: 014
     Dates: start: 20081209, end: 20090322
  2. RIBAVIRIN [Suspect]
     Indication: HEPATITIS C
     Dosage: 1200MG;QD;PO
     Route: 048
     Dates: start: 20081209, end: 20090322
  3. RIBAVIRIN [Suspect]
     Indication: HEPATITIS C
     Dosage: 1200MG;QD;PO
     Route: 048
     Dates: start: 20090330
  4. BOCEPREVIR [Suspect]
     Indication: HEPATITIS C
     Dosage: 1200 MG; QD; PO
     Route: 048
     Dates: start: 20090107, end: 20090322
  5. BOCEPREVIR [Suspect]
     Indication: HEPATITIS C
     Dosage: 1200 MG; QD; PO
     Route: 048
     Dates: start: 20090330
  6. BOCEPREVIR [Suspect]
  7. BOCEPREVIR [Suspect]
  8. POCEPREVIR [Suspect]
  9. AMBIEN [Concomitant]
  10. NEUPOGEN [Concomitant]
  11. IBUPROFEN [Concomitant]

REACTIONS (6)
  - BIPOLAR I DISORDER [None]
  - DISTURBANCE IN ATTENTION [None]
  - HYPERAESTHESIA [None]
  - PSYCHIATRIC DECOMPENSATION [None]
  - PSYCHOMOTOR HYPERACTIVITY [None]
  - SUICIDAL IDEATION [None]
